FAERS Safety Report 12837092 (Version 1)
Quarter: 2016Q4

REPORT INFORMATION
  Report Type: Spontaneous
  Country: JP (occurrence: JP)
  Receive Date: 20161011
  Receipt Date: 20161011
  Transmission Date: 20170207
  Serious: Yes (Other)
  Sender: FDA-Public Use
  Company Number: JP-PFIZER INC-2016202941

PATIENT
  Age: 67 Year
  Sex: Female

DRUGS (1)
  1. PREMARIN [Suspect]
     Active Substance: ESTROGENS, CONJUGATED
     Dosage: 2 DF, UNK
     Route: 048

REACTIONS (5)
  - Cystitis [Unknown]
  - Breast pain [Unknown]
  - Vaginal infection [Unknown]
  - Headache [Unknown]
  - Asthenia [Unknown]
